FAERS Safety Report 8437991-8 (Version None)
Quarter: 2012Q2

REPORT INFORMATION
  Report Type: 
  Country: None (occurrence: None)
  Receive Date: 20120614
  Receipt Date: 20120530
  Transmission Date: 20120825
  Serious: No
  Sender: FDA-Public Use
  Company Number: US-AMGEN-USASP2012031415

PATIENT
  Age: 59 Year
  Sex: Female
  Weight: 44.898 kg

DRUGS (3)
  1. CORTICOSTEROIDS [Concomitant]
     Indication: ASTHMA
  2. PROLIA [Suspect]
     Indication: SENILE OSTEOPOROSIS
     Dosage: 60 MG, Q6MO
     Route: 058
     Dates: start: 20120317
  3. PROLIA [Suspect]
     Dosage: 60 MG, Q6MO
     Route: 058
     Dates: start: 20110917, end: 20120317

REACTIONS (5)
  - EAR DISCOMFORT [None]
  - CYSTITIS [None]
  - PAIN IN EXTREMITY [None]
  - HYPOACUSIS [None]
  - BACK PAIN [None]
